FAERS Safety Report 7150231-5 (Version None)
Quarter: 2010Q4

REPORT INFORMATION
  Report Type: 
  Country: None (occurrence: None)
  Receive Date: 20101126
  Receipt Date: 20101117
  Transmission Date: 20110411
  Serious: Yes (Hospitalization)
  Sender: FDA-Public Use
  Company Number: 2010PL000156

PATIENT
  Age: 60 Year
  Sex: Female
  Weight: 71.6683 kg

DRUGS (9)
  1. IMURAN [Suspect]
     Indication: MYASTHENIA GRAVIS
     Dosage: 100 MG
  2. GAMMA GLOBULIN HUMAN [Suspect]
     Indication: MYASTHENIA GRAVIS
     Dosage: 35 GM;QOW;IV
     Route: 042
     Dates: start: 20091001
  3. PREDNISONE [Concomitant]
  4. SIMVASTATIN [Concomitant]
  5. MESTINON [Concomitant]
  6. LEXAPRO [Concomitant]
  7. SYNTHROID [Concomitant]
  8. LEVEMIR [Concomitant]
  9. BENADRYL [Concomitant]

REACTIONS (1)
  - SUBARACHNOID HAEMORRHAGE [None]
